FAERS Safety Report 23746801 (Version 2)
Quarter: 2024Q2

REPORT INFORMATION
  Report Type: Spontaneous
  Country: US (occurrence: None)
  Receive Date: 20240416
  Receipt Date: 20240417
  Transmission Date: 20240716
  Serious: Yes (Other)
  Sender: FDA-Public Use
  Company Number: 2024A084702

PATIENT
  Sex: Female
  Weight: 65.8 kg

DRUGS (1)
  1. LYNPARZA [Suspect]
     Active Substance: OLAPARIB
     Indication: Ovarian cancer
     Route: 048

REACTIONS (4)
  - Malignant neoplasm progression [Unknown]
  - Pleural effusion [Unknown]
  - Drug ineffective [Unknown]
  - Nausea [Recovered/Resolved]
